FAERS Safety Report 14235275 (Version 1)
Quarter: 2017Q4

REPORT INFORMATION
  Report Type: Spontaneous
  Country: US (occurrence: US)
  Receive Date: 20171129
  Receipt Date: 20171129
  Transmission Date: 20180321
  Serious: No
  Sender: FDA-Public Use
  Company Number: US-LEADIANT BIOSCIENCES INC-2017STPI000260

PATIENT
  Sex: Female

DRUGS (7)
  1. MULTIVITAMIN                       /00097801/ [Concomitant]
     Active Substance: VITAMINS
  2. MATULANE [Suspect]
     Active Substance: PROCARBAZINE HYDROCHLORIDE
     Indication: BRAIN NEOPLASM MALIGNANT
     Dosage: 50 MG, UNK
     Route: 048
     Dates: start: 20170124
  3. VIMPAT [Concomitant]
     Active Substance: LACOSAMIDE
  4. KEPPRA [Concomitant]
     Active Substance: LEVETIRACETAM
  5. ONDANSETRON [Concomitant]
     Active Substance: ONDANSETRON
  6. AMBIEN [Concomitant]
     Active Substance: ZOLPIDEM TARTRATE
  7. PEPCID                             /00305201/ [Concomitant]
     Active Substance: ALUMINUM HYDROXIDE\MAGNESIUM CARBONATE

REACTIONS (1)
  - Nausea [Not Recovered/Not Resolved]
